FAERS Safety Report 8538430-9 (Version None)
Quarter: 2012Q3

REPORT INFORMATION
  Report Type: 
  Country: None (occurrence: None)
  Receive Date: 20120726
  Receipt Date: 20120705
  Transmission Date: 20120928
  Serious: Yes (Other)
  Sender: FDA-Public Use
  Company Number: US-009507513-2012SP029141

PATIENT

DRUGS (4)
  1. PEG-INTRON [Suspect]
     Indication: HEPATITIS C
     Dosage: UNK UNK, UNKNOWN
     Dates: start: 20120324, end: 20120529
  2. REBETOL [Suspect]
     Indication: HEPATITIS C
     Dosage: 600 MG, BID
     Route: 048
     Dates: start: 20120324, end: 20120529
  3. REBETOL [Suspect]
     Dosage: UNK UNK, UNKNOWN
     Route: 065
  4. VICTRELIS [Suspect]
     Indication: HEPATITIS C
     Dosage: UNK UNK, UNKNOWN
     Dates: start: 20120324, end: 20120529

REACTIONS (6)
  - COUGH [None]
  - ANAEMIA [None]
  - CONFUSIONAL STATE [None]
  - NASOPHARYNGITIS [None]
  - DECREASED APPETITE [None]
  - ASTHENIA [None]
